FAERS Safety Report 18523445 (Version 1)
Quarter: 2020Q4

REPORT INFORMATION
  Report Type: Report from Study
  Country: IT (occurrence: IT)
  Receive Date: 20201119
  Receipt Date: 20201119
  Transmission Date: 20210114
  Serious: Yes (Hospitalization)
  Sender: FDA-Public Use
  Company Number: IT-TEVA-2020-IT-1849545

PATIENT
  Age: 18 Year
  Sex: Female

DRUGS (7)
  1. ARIPIPRAZOLE. [Concomitant]
     Active Substance: ARIPIPRAZOLE
  2. PANTOPRAZOLO TEVA  ITALIA [Suspect]
     Active Substance: PANTOPRAZOLE SODIUM
     Indication: GASTRITIS
     Dosage: 140 MG
     Route: 048
     Dates: start: 20200907, end: 20200907
  3. FLUOXETINE [Concomitant]
     Active Substance: FLUOXETINE HYDROCHLORIDE
  4. MOGADON 5 MG COMPRESSE [Concomitant]
  5. MELATONIN [Concomitant]
     Active Substance: MELATONIN
     Route: 048
  6. PARACETAMOL [Suspect]
     Active Substance: ACETAMINOPHEN
     Indication: PAIN
     Dosage: 10000 MG
     Route: 048
     Dates: start: 20200907, end: 20200907
  7. BISOPROLOLO SANDOZ 2,5 MG COMPRESSE RIVESTITE CON FILM [Suspect]
     Active Substance: BISOPROLOL FUMARATE
     Indication: ARRHYTHMIA
     Dosage: 27.5 MG
     Route: 048
     Dates: start: 20200907, end: 20200907

REACTIONS (5)
  - Drug abuse [Recovering/Resolving]
  - Bradycardia [Recovering/Resolving]
  - Hypotension [Recovering/Resolving]
  - Intentional self-injury [Recovering/Resolving]
  - Overdose [Recovering/Resolving]

NARRATIVE: CASE EVENT DATE: 20200907
